FAERS Safety Report 7263627-8 (Version None)
Quarter: 2011Q1

REPORT INFORMATION
  Report Type: 
  Country: None (occurrence: None)
  Receive Date: 20110130
  Receipt Date: 20101029
  Transmission Date: 20110831
  Serious: No
  Sender: FDA-Public Use
  Company Number: US-ABBOTT-10P-163-0682105-00

PATIENT
  Sex: Male
  Weight: 91.708 kg

DRUGS (1)
  1. HUMIRA [Suspect]
     Indication: PSORIASIS
     Dates: start: 20100801

REACTIONS (11)
  - DRUG INEFFECTIVE [None]
  - NAUSEA [None]
  - DIARRHOEA [None]
  - MYALGIA [None]
  - HAEMATOCHEZIA [None]
  - RESPIRATORY TRACT INFECTION [None]
  - VOMITING [None]
  - NASOPHARYNGITIS [None]
  - ABDOMINAL PAIN [None]
  - SINUSITIS [None]
  - ARTHRALGIA [None]
